FAERS Safety Report 6704464-X (Version None)
Quarter: 2010Q2

REPORT INFORMATION
  Report Type: 
  Country: None (occurrence: None)
  Receive Date: 20100430
  Receipt Date: 20100420
  Transmission Date: 20101027
  Serious: Yes (Life-Threatening, Hospitalization)
  Sender: FDA-Public Use
  Company Number: GXKR2010US04462

PATIENT
  Age: 24 Year
  Sex: Female

DRUGS (2)
  1. DIAZEPAM [Suspect]
     Dosage: ABOUT 10 DF, ONCE/SINGLE
     Route: 048
  2. ETHYLENE GLYCOL [Suspect]
     Route: 048

REACTIONS (19)
  - AMNESIA [None]
  - ANOXIC ENCEPHALOPATHY [None]
  - APNOEA [None]
  - AREFLEXIA [None]
  - COMA [None]
  - CORNEAL REFLEX DECREASED [None]
  - CYANOSIS [None]
  - DIALYSIS [None]
  - ENDOTRACHEAL INTUBATION [None]
  - HYPOVENTILATION [None]
  - INTENTIONAL OVERDOSE [None]
  - LOSS OF CONSCIOUSNESS [None]
  - MECHANICAL VENTILATION [None]
  - OLIGURIA [None]
  - PNEUMONIA ASPIRATION [None]
  - PUPIL FIXED [None]
  - PUPILS UNEQUAL [None]
  - RENAL FAILURE ACUTE [None]
  - THERAPEUTIC HYPOTHERMIA [None]
